FAERS Safety Report 7273538-X (Version None)
Quarter: 2011Q1

REPORT INFORMATION
  Report Type: 
  Country: None (occurrence: None)
  Receive Date: 20110203
  Receipt Date: 20110131
  Transmission Date: 20110831
  Serious: Yes (Hospitalization, Other)
  Sender: FDA-Public Use
  Company Number: NL-ABBOTT-10P-114-0687826-00

PATIENT
  Sex: Male
  Weight: 55 kg

DRUGS (8)
  1. HUMIRA [Suspect]
     Dates: start: 20101012
  2. OMEPRAZOLE [Concomitant]
     Indication: ANTIBIOTIC PROPHYLAXIS
     Dosage: ONCE DAILY, ONE DOSE
     Dates: start: 20101201
  3. MORPHINE [Concomitant]
     Indication: PAIN
     Route: 058
     Dates: start: 20101120
  4. HUMIRA [Suspect]
     Dates: start: 20100925, end: 20100925
  5. HUMIRA [Suspect]
     Indication: CROHN'S DISEASE
     Dosage: 160MG ON 11-SEP-2010, 80MG ON 25-SEP-2010, 40 MG EVERY 2 WEEKS FROM 12-OCT-2010
     Route: 058
     Dates: start: 20100911, end: 20100911
  6. OXYCONTIN [Concomitant]
     Indication: PAIN
     Dosage: 3 TO 6 TIMES DAILY, ONE DOSE
     Dates: start: 20101201
  7. PARACETAMOL+CODEIN [Concomitant]
     Indication: PRODUCT USED FOR UNKNOWN INDICATION
     Dosage: 500/10MG, TWO DOSES EACH WITH OXYCONTIN
     Dates: start: 20101201
  8. ACETAMINOPHEN [Concomitant]
     Indication: PAIN
     Dosage: AS NEEDED
     Route: 048

REACTIONS (6)
  - ABSCESS [None]
  - PAIN [None]
  - RECTAL ABSCESS [None]
  - ANAL FISTULA [None]
  - BLOOD TEST ABNORMAL [None]
  - SYNCOPE [None]
